FAERS Safety Report 14303905 (Version 1)
Quarter: 2017Q4

REPORT INFORMATION
  Report Type: Spontaneous
  Country: US (occurrence: US)
  Receive Date: 20171219
  Receipt Date: 20171219
  Transmission Date: 20180321
  Serious: Yes (Hospitalization)
  Sender: FDA-Public Use
  Company Number: US-BAXTER-2017BAX042262

PATIENT
  Age: 66 Year
  Sex: Female

DRUGS (1)
  1. METOPROLOL TARTRATE INJECTION, USP (1455-10) [Suspect]
     Active Substance: METOPROLOL TARTRATE
     Indication: ATRIAL FIBRILLATION
     Route: 065

REACTIONS (1)
  - Dermatitis exfoliative [Recovering/Resolving]
